FAERS Safety Report 4397369-3 (Version None)
Quarter: 2004Q3

REPORT INFORMATION
  Report Type: 
  Country: None (occurrence: None)
  Receive Date: 20040714
  Receipt Date: 20040609
  Transmission Date: 20050211
  Serious: Yes (Hospitalization, Other)
  Sender: FDA-Public Use
  Company Number: US-BRISTOL-MYERS SQUIBB COMPANY-12609004

PATIENT
  Age: 43 Year
  Sex: Male
  Weight: 81 kg

DRUGS (11)
  1. SUSTIVA [Suspect]
     Indication: HIV INFECTION
     Dosage: TEMPORARILY WITH-HELD AT HOSPITALIZATION
     Route: 048
     Dates: start: 20040202
  2. TENOFOVIR [Suspect]
     Indication: HIV INFECTION
     Dosage: TEMPORARILY WITH-HELD AT HOSPITALIZATION
     Route: 048
     Dates: start: 20040202
  3. EPIVIR [Suspect]
     Indication: HIV INFECTION
     Dosage: TEMPORARILY WITH-HELD AT HOSPITALIZATION
     Route: 048
     Dates: start: 20040202
  4. AZITHROMYCIN [Concomitant]
     Route: 048
  5. ETHAMBUTOL HYDROCHLORIDE [Concomitant]
     Route: 048
  6. RIFABUTIN [Concomitant]
     Route: 048
  7. BUPROPION HCL [Concomitant]
     Route: 048
  8. DAPSONE [Concomitant]
     Route: 048
  9. ESCITALOPRAM OXALATE [Concomitant]
     Route: 048
  10. EMOLLIENT [Concomitant]
     Route: 061
  11. SMZ-TMP [Concomitant]
     Route: 048

REACTIONS (2)
  - HYPERCALCAEMIA [None]
  - RENAL FAILURE ACUTE [None]
